FAERS Safety Report 8780197 (Version 1)
Quarter: 2012Q4

REPORT INFORMATION
  Report Type: Spontaneous
  Country: US (occurrence: None)
  Receive Date: 20120904
  Receipt Date: 20120904
  Transmission Date: 20130627
  Serious: No
  Sender: FDA-Public Use
  Company Number: None

PATIENT
  Age: 106 Year
  Sex: Female
  Weight: 27.22 kg

DRUGS (1)
  1. CONCERTA [Suspect]
     Route: 048
     Dates: start: 20110623, end: 20120725

REACTIONS (2)
  - Product substitution issue [None]
  - Abdominal pain [None]
